FAERS Safety Report 4452186-0 (Version None)
Quarter: 2004Q3

REPORT INFORMATION
  Report Type: 
  Country: None (occurrence: None)
  Receive Date: 20040913
  Receipt Date: 20040715
  Transmission Date: 20050211
  Serious: No
  Sender: FDA-Public Use
  Company Number: 2004-BP-05793BP(0)

PATIENT
  Age: 74 Year
  Sex: Male

DRUGS (9)
  1. SPIRIVA [Suspect]
     Indication: EMPHYSEMA
     Dosage: 18 MCG (18 MCG), IH
     Route: 055
     Dates: start: 20040714
  2. ALBUTEROL [Concomitant]
  3. ATROVENT [Concomitant]
  4. ALBUTEROL/IPRATROPIUM [Concomitant]
  5. WATER PILLS (AQUA-BAN) [Concomitant]
  6. ALLERGY MEDICATION (ALLERGY MEDICATION) [Concomitant]
  7. POTASSIUM [Concomitant]
  8. UNSPECIFIED CHOLESTEROL MEDICATION [Concomitant]
  9. UNSPECIFIED PROSTATE MEDICATION [Concomitant]

REACTIONS (1)
  - THERAPEUTIC RESPONSE DECREASED [None]
